FAERS Safety Report 24699027 (Version 1)
Quarter: 2024Q4

REPORT INFORMATION
  Report Type: Spontaneous
  Country: US (occurrence: US)
  Receive Date: 20241205
  Receipt Date: 20241205
  Transmission Date: 20250115
  Serious: Yes (Other)
  Sender: TEVA
  Company Number: US-TEVA-VS-3269393

PATIENT
  Age: 75 Year
  Sex: Female

DRUGS (1)
  1. QVAR [Suspect]
     Active Substance: BECLOMETHASONE DIPROPIONATE
     Indication: Product used for unknown indication
     Route: 055

REACTIONS (4)
  - Upper limb fracture [Unknown]
  - Wheezing [Unknown]
  - Fall [Unknown]
  - Loss of personal independence in daily activities [Unknown]
